FAERS Safety Report 6685750-9 (Version None)
Quarter: 2010Q2

REPORT INFORMATION
  Report Type: 
  Country: None (occurrence: None)
  Receive Date: 20100415
  Receipt Date: 20100415
  Transmission Date: 20101027
  Serious: Yes (Other)
  Sender: FDA-Public Use
  Company Number: None

PATIENT
  Age: 51 Year
  Sex: Male
  Weight: 67.1324 kg

DRUGS (4)
  1. ABRAXANE [Suspect]
     Indication: SQUAMOUS CELL CARCINOMA
     Dosage: 25 MG/M2 WEEKLY IV
     Route: 042
     Dates: start: 20090506, end: 20090617
  2. ZOFRAN [Concomitant]
  3. DECADRON [Concomitant]
  4. COMPAZINE [Concomitant]

REACTIONS (1)
  - LYMPHOPENIA [None]
